FAERS Safety Report 14662297 (Version 1)
Quarter: 2018Q1

REPORT INFORMATION
  Report Type: Spontaneous
  Country: US (occurrence: US)
  Receive Date: 20180321
  Receipt Date: 20180321
  Transmission Date: 20180509
  Serious: No
  Sender: FDA-Public Use
  Company Number: US-ASTRAZENECA-2018SE35034

PATIENT
  Age: 87 Year
  Sex: Female
  Weight: 64.9 kg

DRUGS (4)
  1. SEROQUEL [Suspect]
     Active Substance: QUETIAPINE FUMARATE
     Indication: PARANOIA
     Route: 048
  2. LIPITOR [Concomitant]
     Active Substance: ATORVASTATIN CALCIUM
  3. SEROQUEL [Suspect]
     Active Substance: QUETIAPINE FUMARATE
     Indication: PARANOIA
     Route: 048
     Dates: start: 201801
  4. RISPERIDONE. [Concomitant]
     Active Substance: RISPERIDONE
     Indication: PARANOIA

REACTIONS (6)
  - Underdose [Not Recovered/Not Resolved]
  - Product use in unapproved indication [Unknown]
  - Somnolence [Recovered/Resolved]
  - Hallucination, visual [Recovered/Resolved]
  - Feeling abnormal [Recovered/Resolved]
  - Off label use [Unknown]

NARRATIVE: CASE EVENT DATE: 2018
